FAERS Safety Report 6077032-3 (Version None)
Quarter: 2009Q1

REPORT INFORMATION
  Report Type: 
  Country: None (occurrence: None)
  Receive Date: 20090211
  Receipt Date: 20090211
  Transmission Date: 20090719
  Serious: Yes (Other)
  Sender: FDA-Public Use
  Company Number: None

PATIENT
  Sex: Female
  Weight: 58.86 kg

DRUGS (8)
  1. CIPROFLOXACIN [Suspect]
     Dosage: 250 MG TID ORAL
     Route: 048
     Dates: start: 20090109, end: 20090210
  2. ACTONEL [Concomitant]
  3. ATIVAN [Concomitant]
  4. BACTROBAN [Concomitant]
  5. HYDROCHLOROTHIAZIDE [Concomitant]
  6. M.V.I. [Concomitant]
  7. ROBITUSSIN AC (GUAIFENESIN AC) [Concomitant]
  8. TESSALON [Concomitant]

REACTIONS (2)
  - DIARRHOEA [None]
  - MALAISE [None]
